FAERS Safety Report 8102060-3 (Version None)
Quarter: 2012Q1

REPORT INFORMATION
  Report Type: 
  Country: None (occurrence: None)
  Receive Date: 20120131
  Receipt Date: 20120130
  Transmission Date: 20120608
  Serious: Yes (Death, Hospitalization)
  Sender: FDA-Public Use
  Company Number: AU-B.I. PHARMACEUTICALS,INC./RIDGEFIELD-2011-AU-01870AU

PATIENT
  Sex: Male

DRUGS (31)
  1. MAGMIN [Concomitant]
     Dosage: 1000 MG
  2. PARAFFIN [Concomitant]
  3. GLYCEROL 2.6% [Concomitant]
  4. OXYCONTIN [Concomitant]
     Indication: PAIN
     Dosage: 20 MG
  5. ARISTOCORT [Concomitant]
     Dosage: 0.02%
  6. MAXOLON [Concomitant]
     Indication: NAUSEA
     Dosage: 30 MG
  7. PANADOL OSTEO [Concomitant]
  8. XALATAN [Concomitant]
     Dosage: 50MCG/ML
  9. LERCANIDIPINE [Concomitant]
     Dosage: 10 MG
  10. CARTIA XT [Concomitant]
  11. ACCUPRIL [Concomitant]
     Dosage: 10 MG
  12. FERRO-F-TAB [Concomitant]
     Dosage: 310MG/350MCG
  13. FINASTA [Concomitant]
     Dosage: 5 MG
  14. IMOVANE [Concomitant]
     Dosage: 7.5 MG
  15. PERIACTIN [Concomitant]
     Dosage: 4 MG
  16. TAZAC [Concomitant]
     Dosage: 300 MG
  17. PRADAXA [Suspect]
     Indication: ATRIAL FIBRILLATION
     Dosage: 220 MG
     Dates: start: 20110602
  18. ATROPT [Concomitant]
     Dosage: 1%
  19. NITROLINGUAL PUMPSPRAY [Concomitant]
  20. ALLEVYN THIN [Concomitant]
     Dosage: 10CM X 10CM DRESSING
  21. CHOLECALCIFEROL [Concomitant]
     Dosage: 3000 U
  22. CLARATYNE [Concomitant]
     Dosage: 10 MG
  23. SIMVASTATIN [Concomitant]
     Dosage: 10 MG
  24. PRILOSEC [Concomitant]
     Dosage: 40 MG
  25. MOVIPREP [Concomitant]
     Dosage: 13.125G/350.7MG/46.6MG/178.5MG
  26. NORMACOL PLUS [Concomitant]
     Dosage: GRANULES - 62%/8%/25%
  27. ACETAMINOPHEN W/ CODEINE [Concomitant]
     Dosage: 500MG/30MG
  28. TRANSDERM-NITRO [Concomitant]
     Dosage: 50 MG
  29. METAMUCIL-2 [Concomitant]
     Dosage: 5.8 G
  30. PREDNEFRIN FORTE [Concomitant]
     Dosage: 1%/0.12%
  31. TIMOLOL MALEATE [Concomitant]

REACTIONS (7)
  - FEMORAL NECK FRACTURE [None]
  - FALL [None]
  - CARDIAC DISORDER [None]
  - PNEUMONIA [None]
  - SEPSIS [None]
  - RENAL IMPAIRMENT [None]
  - OEDEMA PERIPHERAL [None]
